FAERS Safety Report 5308281-7 (Version None)
Quarter: 2007Q2

REPORT INFORMATION
  Report Type: 
  Country: None (occurrence: None)
  Receive Date: 20070426
  Receipt Date: 20070418
  Transmission Date: 20071010
  Serious: Yes (Other)
  Sender: FDA-Public Use
  Company Number: 2007UW06387

PATIENT
  Age: 49 Year
  Sex: Female
  Weight: 56.7 kg

DRUGS (5)
  1. SEROQUEL [Suspect]
     Route: 048
     Dates: start: 20010401
  2. HYDROCHLOROTHIAZIDE [Concomitant]
  3. METFORMIN HCL [Concomitant]
  4. LISINOPRIL [Concomitant]
  5. ASPIRIN [Concomitant]

REACTIONS (7)
  - BLOOD PRESSURE INCREASED [None]
  - DIABETES MELLITUS NON-INSULIN-DEPENDENT [None]
  - FREQUENT BOWEL MOVEMENTS [None]
  - MICTURITION URGENCY [None]
  - POLLAKIURIA [None]
  - RESPIRATORY DISORDER [None]
  - THROMBOSIS [None]
